FAERS Safety Report 26109639 (Version 1)
Quarter: 2025Q4

REPORT INFORMATION
  Report Type: Spontaneous
  Country: EU (occurrence: EU)
  Receive Date: 20251201
  Receipt Date: 20251201
  Transmission Date: 20260118
  Serious: Yes (Hospitalization)
  Sender: MYLAN
  Company Number: None

PATIENT
  Age: 79 Year
  Sex: Male
  Weight: 78 kg

DRUGS (12)
  1. TICAGRELOR [Interacting]
     Active Substance: TICAGRELOR
     Indication: Platelet aggregation inhibition
     Dosage: 180 MILLIGRAM, QD (90 MG X 2 / DAY)
     Dates: start: 20250711, end: 20250912
  2. TICAGRELOR [Interacting]
     Active Substance: TICAGRELOR
     Dosage: 180 MILLIGRAM, QD (90 MG X 2 / DAY)
     Route: 048
     Dates: start: 20250711, end: 20250912
  3. TICAGRELOR [Interacting]
     Active Substance: TICAGRELOR
     Dosage: 180 MILLIGRAM, QD (90 MG X 2 / DAY)
     Route: 048
     Dates: start: 20250711, end: 20250912
  4. TICAGRELOR [Interacting]
     Active Substance: TICAGRELOR
     Dosage: 180 MILLIGRAM, QD (90 MG X 2 / DAY)
     Dates: start: 20250711, end: 20250912
  5. ATORVASTATIN [Interacting]
     Active Substance: ATORVASTATIN
     Indication: Myocardial infarction
     Dosage: 80 MILLIGRAM, QD
     Dates: start: 20250713, end: 20250905
  6. ATORVASTATIN [Interacting]
     Active Substance: ATORVASTATIN
     Dosage: 80 MILLIGRAM, QD
     Route: 048
     Dates: start: 20250713, end: 20250905
  7. ATORVASTATIN [Interacting]
     Active Substance: ATORVASTATIN
     Dosage: 80 MILLIGRAM, QD
     Route: 048
     Dates: start: 20250713, end: 20250905
  8. ATORVASTATIN [Interacting]
     Active Substance: ATORVASTATIN
     Dosage: 80 MILLIGRAM, QD
     Dates: start: 20250713, end: 20250905
  9. NIACINAMIDE [Suspect]
     Active Substance: NIACINAMIDE
     Indication: Platelet aggregation inhibition
     Dosage: 180 MILLIGRAM, QD (90 MG X 2 PER DAY)
     Dates: start: 20250711, end: 20250912
  10. NIACINAMIDE [Suspect]
     Active Substance: NIACINAMIDE
     Dosage: 180 MILLIGRAM, QD (90 MG X 2 PER DAY)
     Route: 048
     Dates: start: 20250711, end: 20250912
  11. NIACINAMIDE [Suspect]
     Active Substance: NIACINAMIDE
     Dosage: 180 MILLIGRAM, QD (90 MG X 2 PER DAY)
     Route: 048
     Dates: start: 20250711, end: 20250912
  12. NIACINAMIDE [Suspect]
     Active Substance: NIACINAMIDE
     Dosage: 180 MILLIGRAM, QD (90 MG X 2 PER DAY)
     Dates: start: 20250711, end: 20250912

REACTIONS (3)
  - Rhabdomyolysis [Recovering/Resolving]
  - Cholestatic liver injury [Recovering/Resolving]
  - Acute kidney injury [Recovering/Resolving]

NARRATIVE: CASE EVENT DATE: 20250904
